FAERS Safety Report 5187029-3 (Version None)
Quarter: 2006Q4

REPORT INFORMATION
  Report Type: 
  Country: None (occurrence: None)
  Receive Date: 20061214
  Receipt Date: 20061201
  Transmission Date: 20070319
  Serious: Yes (Hospitalization, Other)
  Sender: FDA-Public Use
  Company Number: 2006114586

PATIENT
  Age: 60 Year
  Sex: Female

DRUGS (4)
  1. LYRICA [Suspect]
  2. ATORVASTATIN CALCIUM [Concomitant]
  3. PERINDOPRIL ERBUMINE [Concomitant]
  4. CLONAZEPAM [Concomitant]

REACTIONS (2)
  - GLOBAL AMNESIA [None]
  - TRANSIENT ISCHAEMIC ATTACK [None]
